FAERS Safety Report 5520163-4 (Version None)
Quarter: 2007Q4

REPORT INFORMATION
  Report Type: 
  Country: None (occurrence: None)
  Receive Date: 20071116
  Receipt Date: 20071023
  Transmission Date: 20080405
  Serious: No
  Sender: FDA-Public Use
  Company Number: US-BOEHRINGER INGELHEIM PHARMACEUTICALS, INC.-2007-BP-20430BP

PATIENT
  Age: 70 Year
  Sex: Female
  Weight: 88 kg

DRUGS (7)
  1. MIRAPEX [Suspect]
     Indication: RESTLESS LEGS SYNDROME
     Route: 048
     Dates: start: 20070101, end: 20070904
  2. ENABLEX [Concomitant]
     Indication: BLADDER PROLAPSE
     Route: 048
  3. ENABLEX [Concomitant]
     Indication: BLADDER DISORDER
  4. FLUOXETINE [Concomitant]
     Route: 048
  5. PREVACID [Concomitant]
     Route: 048
  6. CALTRATE [Concomitant]
  7. FIBER [Concomitant]

REACTIONS (5)
  - AGEUSIA [None]
  - HYPERHIDROSIS [None]
  - INCREASED APPETITE [None]
  - SOMNOLENCE [None]
  - WEIGHT INCREASED [None]
